FAERS Safety Report 8835883 (Version 1)
Quarter: 2012Q4

REPORT INFORMATION
  Report Type: 
  Country: US (occurrence: US)
  Receive Date: 20121011
  Receipt Date: 20121011
  Transmission Date: 20130627
  Serious: No
  Sender: FDA-Public Use
  Company Number: US-BAYER-2012-105404

PATIENT
  Age: 78 Year
  Sex: Female
  Weight: 53 kg

DRUGS (2)
  1. ALEVE CAPLET/TABLET,MIDOL EXTENDED RELIEF CAPLET [Suspect]
     Dosage: 1 DF, QD with food
     Route: 048
     Dates: start: 20120913
  2. INDOMETHACIN [Concomitant]

REACTIONS (4)
  - Nervousness [None]
  - Therapeutic response unexpected [None]
  - Dyspepsia [None]
  - Nervousness [None]
